FAERS Safety Report 9460112 (Version 1)
Quarter: 2013Q3

REPORT INFORMATION
  Report Type: Spontaneous
  Country: US (occurrence: US)
  Receive Date: 20130815
  Receipt Date: 20130815
  Transmission Date: 20140515
  Serious: Yes (Other)
  Sender: FDA-Public Use
  Company Number: PHHY2013US085267

PATIENT
  Age: 22 Year
  Sex: Female

DRUGS (3)
  1. VANCOMYCIN [Suspect]
     Dosage: 18 MG/KG (1500MG) EVERY 8 HOURS
  2. PIPERACILLIN+TAZOBACTAM [Suspect]
  3. CLINDAMYCIN [Suspect]

REACTIONS (4)
  - Renal failure acute [Recovering/Resolving]
  - Toxicity to various agents [Recovering/Resolving]
  - Drug level increased [Recovering/Resolving]
  - Maternal exposure during pregnancy [Unknown]
